FAERS Safety Report 15892991 (Version 1)
Quarter: 2019Q1

REPORT INFORMATION
  Report Type: Report from Study
  Country: US (occurrence: US)
  Receive Date: 20190130
  Receipt Date: 20190130
  Transmission Date: 20190417
  Serious: No
  Sender: FDA-Public Use
  Company Number: US-EXELIXIS-CABO-18016669

PATIENT
  Sex: Female

DRUGS (9)
  1. METRONIDAZOLE. [Concomitant]
     Active Substance: METRONIDAZOLE
  2. XANAX XR [Concomitant]
     Active Substance: ALPRAZOLAM
  3. ROSUVASTATIN CALCIUM. [Concomitant]
     Active Substance: ROSUVASTATIN CALCIUM
  4. CIPRO [Concomitant]
     Active Substance: CIPROFLOXACIN HYDROCHLORIDE
  5. CABOMETYX [Suspect]
     Active Substance: CABOZANTINIB S-MALATE
     Indication: RENAL CANCER
     Dosage: 60 MG, QD
     Route: 048
     Dates: start: 20180829, end: 2018
  6. CABOMETYX [Suspect]
     Active Substance: CABOZANTINIB S-MALATE
     Dosage: 20 MG, QD
     Route: 048
     Dates: start: 2018, end: 2018
  7. AMOXICILLIN. [Concomitant]
     Active Substance: AMOXICILLIN
  8. FLUOCINONIDE. [Concomitant]
     Active Substance: FLUOCINONIDE
  9. ASPIRIN 81 [Concomitant]
     Active Substance: ASPIRIN

REACTIONS (2)
  - Oral discomfort [Unknown]
  - Adverse drug reaction [Unknown]

NARRATIVE: CASE EVENT DATE: 2018
